FAERS Safety Report 8978749 (Version 1)
Quarter: 2012Q4

REPORT INFORMATION
  Report Type: Spontaneous
  Country: US (occurrence: None)
  Receive Date: 20121218
  Receipt Date: 20121218
  Transmission Date: 20130627
  Serious: Yes (Hospitalization)
  Sender: FDA-Public Use
  Company Number: None

PATIENT
  Age: 66 Year
  Sex: Male
  Weight: 118.39 kg

DRUGS (2)
  1. KYPROLIS [Suspect]
     Indication: MULTIPLE MYELOMA
     Dosage: 44 mg once IV Drip
2 doses
     Route: 041
     Dates: start: 20121102
  2. KYPROLIS [Suspect]
     Indication: MULTIPLE MYELOMA
     Dates: start: 20121109

REACTIONS (2)
  - Agitation [None]
  - Hallucination [None]
